FAERS Safety Report 7700837-7 (Version None)
Quarter: 2011Q3

REPORT INFORMATION
  Report Type: 
  Country: None (occurrence: None)
  Receive Date: 20110817
  Receipt Date: 20110801
  Transmission Date: 20111222
  Serious: Yes (Death, Hospitalization)
  Sender: FDA-Public Use
  Company Number: 2011MA005757

PATIENT
  Age: 74 Year
  Sex: Female

DRUGS (3)
  1. MEXILETINE HYDROCHLORIDE [Suspect]
     Indication: PAIN
     Dates: start: 20070101
  2. CARBAMAZEPINE [Suspect]
     Indication: PAIN
     Dates: start: 20070101
  3. GEFITINIB (GEFITINIB) [Suspect]
     Indication: METASTASES TO BONE
     Dates: start: 20070101

REACTIONS (12)
  - PLATELET COUNT DECREASED [None]
  - DIARRHOEA [None]
  - CANDIDA TEST POSITIVE [None]
  - OEDEMA PERIPHERAL [None]
  - PAIN IN EXTREMITY [None]
  - LYMPHOCYTE MORPHOLOGY ABNORMAL [None]
  - FUNGAL INFECTION [None]
  - DRUG RASH WITH EOSINOPHILIA AND SYSTEMIC SYMPTOMS [None]
  - PNEUMONIA CYTOMEGALOVIRAL [None]
  - LARGE INTESTINAL ULCER [None]
  - GENERAL PHYSICAL HEALTH DETERIORATION [None]
  - DRUG INEFFECTIVE [None]
